FAERS Safety Report 17892712 (Version 1)
Quarter: 2020Q2

REPORT INFORMATION
  Report Type: Spontaneous
  Country: US (occurrence: US)
  Receive Date: 20200613
  Receipt Date: 20200613
  Transmission Date: 20200714
  Serious: No
  Sender: FDA-Public Use
  Company Number: US-B.I. PHARMACEUTICALS,INC./RIDGEFIELD-2020-US-028659

PATIENT
  Age: 81 Year
  Sex: Female

DRUGS (4)
  1. TYLENOL [Concomitant]
     Active Substance: ACETAMINOPHEN
     Indication: MYELOPATHY
     Dosage: ONE PILL FOUR TO FIVE TIMES A DAY
     Route: 065
  2. MICARDIS HCT [Suspect]
     Active Substance: HYDROCHLOROTHIAZIDE\TELMISARTAN
     Indication: HYPERTENSION
     Dosage: 40/12.5MG ONE AND HALF PILLS A DAY
     Route: 065
     Dates: start: 202005
  3. RESTASIS [Concomitant]
     Active Substance: CYCLOSPORINE
     Indication: MACULAR DEGENERATION
     Route: 065
  4. TYLENOL [Concomitant]
     Active Substance: ACETAMINOPHEN
     Indication: SPINAL STENOSIS

REACTIONS (3)
  - Dysuria [Not Recovered/Not Resolved]
  - Renal pain [Not Recovered/Not Resolved]
  - Renal disorder [Not Recovered/Not Resolved]

NARRATIVE: CASE EVENT DATE: 202005
